FAERS Safety Report 4898109-1 (Version None)
Quarter: 2006Q1

REPORT INFORMATION
  Report Type: 
  Country: None (occurrence: None)
  Receive Date: 20060127
  Receipt Date: 20060109
  Transmission Date: 20060701
  Serious: Yes (Hospitalization)
  Sender: FDA-Public Use
  Company Number: TRP_0663_2005

PATIENT
  Age: 54 Year
  Sex: Male
  Weight: 106.5953 kg

DRUGS (8)
  1. RIBAVIRIN [Suspect]
     Indication: HEPATITIS C
     Dosage: DF, PO
     Route: 048
     Dates: start: 20050619, end: 20051016
  2. PEGASYS [Suspect]
     Indication: HEPATITIS C
     Dosage: DF, SC
     Route: 058
     Dates: start: 20050619, end: 20051016
  3. CITALOPRAM HYDROBROMIDE [Concomitant]
  4. GABAPENTIN [Concomitant]
  5. HYDROCHLOROTHIAZIDE [Concomitant]
  6. METHADONE HCL [Concomitant]
  7. VIAGRA [Concomitant]
  8. METHADONE [Concomitant]

REACTIONS (11)
  - ABDOMINAL PAIN LOWER [None]
  - ABSCESS JAW [None]
  - ANXIETY [None]
  - BODY TEMPERATURE INCREASED [None]
  - CHILLS [None]
  - DENTAL EXAMINATION ABNORMAL [None]
  - GINGIVAL INFECTION [None]
  - HYPERHIDROSIS [None]
  - NEUTROPHIL COUNT DECREASED [None]
  - TOOTH LOSS [None]
  - WHITE BLOOD CELL COUNT DECREASED [None]
